FAERS Safety Report 8624022-X (Version None)
Quarter: 2012Q3

REPORT INFORMATION
  Report Type: 
  Country: None (occurrence: None)
  Receive Date: 20120827
  Receipt Date: 20120817
  Transmission Date: 20120928
  Serious: Yes (Hospitalization)
  Sender: FDA-Public Use
  Company Number: JP-ASTRAZENECA-2012SE40361

PATIENT
  Sex: Female

DRUGS (3)
  1. TENORMIN [Suspect]
     Route: 064
     Dates: start: 20101001, end: 20110101
  2. TENORMIN [Suspect]
     Route: 064
     Dates: start: 20110101
  3. TENORMIN [Suspect]
     Route: 064
     Dates: end: 20101001

REACTIONS (4)
  - FOETAL GROWTH RESTRICTION [None]
  - BRADYCARDIA FOETAL [None]
  - FOETAL EXPOSURE DURING PREGNANCY [None]
  - LONG QT SYNDROME CONGENITAL [None]
